FAERS Safety Report 6847150-8 (Version None)
Quarter: 2010Q3

REPORT INFORMATION
  Report Type: 
  Country: None (occurrence: None)
  Receive Date: 20100716
  Receipt Date: 20100423
  Transmission Date: 20110219
  Serious: No
  Sender: FDA-Public Use
  Company Number: 2009BI040925

PATIENT
  Age: 42 Year
  Sex: Female

DRUGS (2)
  1. TYSABRI [Suspect]
     Indication: MULTIPLE SCLEROSIS
     Route: 042
     Dates: start: 20070226, end: 20070716
  2. TYSABRI [Suspect]
     Route: 042
     Dates: start: 20071114

REACTIONS (5)
  - APHASIA [None]
  - BENIGN NEOPLASM OF THYROID GLAND [None]
  - GOITRE [None]
  - NASOPHARYNGITIS [None]
  - SINUSITIS [None]
